FAERS Safety Report 6636984-0 (Version None)
Quarter: 2010Q1

REPORT INFORMATION
  Report Type: 
  Country: None (occurrence: None)
  Receive Date: 20100316
  Receipt Date: 20100304
  Transmission Date: 20100710
  Serious: Yes (Other)
  Sender: FDA-Public Use
  Company Number: JP-PFIZER INC-2010025962

PATIENT
  Age: 62 Year
  Sex: Male

DRUGS (2)
  1. GABAPEN [Suspect]
     Dosage: UNK
     Route: 048
  2. TEGRETOL [Concomitant]
     Dosage: UNK
     Route: 048
     Dates: start: 20070701

REACTIONS (1)
  - HYPERKALAEMIA [None]
